FAERS Safety Report 8246908-0 (Version None)
Quarter: 2012Q1

REPORT INFORMATION
  Report Type: 
  Country: None (occurrence: None)
  Receive Date: 20120330
  Receipt Date: 20120326
  Transmission Date: 20120608
  Serious: Yes (Death, Other)
  Sender: FDA-Public Use
  Company Number: JP-PFIZER INC-2011252616

PATIENT
  Age: 68 Year
  Sex: Male
  Weight: 49 kg

DRUGS (5)
  1. SUTENT [Suspect]
     Indication: RENAL CANCER METASTATIC
     Dosage: 25 MG, 1X/DAY
     Route: 048
     Dates: start: 20101005, end: 20101026
  2. MEILAX [Concomitant]
     Indication: DELIRIUM
     Dosage: 1 MG, 1X/DAY
     Route: 048
     Dates: start: 20101005, end: 20101025
  3. PAXIL [Concomitant]
     Indication: DELIRIUM
     Dosage: 10 MG, 1X/DAY
     Route: 048
     Dates: start: 20101005, end: 20101025
  4. SEROQUEL [Concomitant]
     Indication: DELIRIUM
     Dosage: 25 MG, 1X/DAY
     Route: 048
     Dates: start: 20101005, end: 20101025
  5. OXYCONTIN [Concomitant]
     Indication: PAIN
     Dosage: 5 MG, 2X/DAY
     Route: 048
     Dates: start: 20101020, end: 20101025

REACTIONS (4)
  - MEGACOLON [None]
  - PNEUMONIA ASPIRATION [None]
  - BONE MARROW FAILURE [None]
  - DISSEMINATED INTRAVASCULAR COAGULATION [None]
